FAERS Safety Report 8105401-6 (Version None)
Quarter: 2012Q1

REPORT INFORMATION
  Report Type: 
  Country: None (occurrence: None)
  Receive Date: 20120201
  Receipt Date: 20120124
  Transmission Date: 20120608
  Serious: Yes (Other)
  Sender: FDA-Public Use
  Company Number: DK-ASTRAZENECA-2012SE05091

PATIENT
  Age: 6104 Day
  Sex: Male
  Weight: 53 kg

DRUGS (4)
  1. FLUOXETINE HCL [Concomitant]
     Indication: DEPRESSION
     Dates: start: 20100318
  2. SEROQUEL [Suspect]
     Indication: AFFECTIVE DISORDER
     Route: 048
     Dates: start: 20110201, end: 20110309
  3. STRATTERA [Concomitant]
  4. STRATTERA [Concomitant]
     Indication: ATTENTION DEFICIT/HYPERACTIVITY DISORDER
     Dates: start: 20061227

REACTIONS (4)
  - LOSS OF CONSCIOUSNESS [None]
  - TARDIVE DYSKINESIA [None]
  - EPILEPSY [None]
  - DAYDREAMING [None]
